FAERS Safety Report 9017026 (Version 1)
Quarter: 2013Q1

REPORT INFORMATION
  Report Type: Spontaneous
  Country: US (occurrence: US)
  Receive Date: 20130117
  Receipt Date: 20130117
  Transmission Date: 20140127
  Serious: Yes (Other)
  Sender: FDA-Public Use
  Company Number: US-SANOFI-AVENTIS-2012SA084986

PATIENT
  Age: 22 Year
  Sex: Female
  Weight: 107 kg

DRUGS (2)
  1. LOVENOX [Suspect]
     Indication: DEEP VEIN THROMBOSIS
     Route: 065
     Dates: start: 20121109
  2. PRENATAL VITAMINS [Concomitant]
     Indication: PREGNANCY
     Dates: start: 2012

REACTIONS (2)
  - Blighted ovum [Unknown]
  - Exposure during pregnancy [Unknown]
